FAERS Safety Report 21955301 (Version 1)
Quarter: 2023Q1

REPORT INFORMATION
  Report Type: Spontaneous
  Country: US (occurrence: None)
  Receive Date: 20230206
  Receipt Date: 20230206
  Transmission Date: 20230418
  Serious: No
  Sender: FDA-Public Use
  Company Number: 2023A018323

PATIENT
  Age: 56 Year
  Sex: Female

DRUGS (5)
  1. SYMBICORT [Suspect]
     Active Substance: BUDESONIDE\FORMOTEROL FUMARATE DIHYDRATE
     Dosage: 160MCG 2 PUFFS TWO TIMES A DAY
     Route: 055
  2. TEZEPELUMAB [Suspect]
     Active Substance: TEZEPELUMAB
     Dates: start: 202205
  3. DUPILUMAB [Suspect]
     Active Substance: DUPILUMAB
     Dosage: 200 MG EVERY 2 WEEKS THAT WAS DISCONTINUED AFTER 18 MONTHS DUE TO CONTINUED POOR ASTHMA CONTROL A...
     Dates: start: 2020
  4. MONTELUKAST [Concomitant]
     Active Substance: MONTELUKAST SODIUM
     Dates: start: 2018
  5. PREDNISONE [Concomitant]
     Active Substance: PREDNISONE
     Indication: Asthma

REACTIONS (4)
  - Dyspnoea [Unknown]
  - Wheezing [Unknown]
  - Asthma [Unknown]
  - Drug ineffective [Unknown]
